FAERS Safety Report 9803665 (Version 1)
Quarter: 2014Q1

REPORT INFORMATION
  Report Type: Spontaneous
  Country: US (occurrence: US)
  Receive Date: 20140108
  Receipt Date: 20140108
  Transmission Date: 20141002
  Serious: No
  Sender: FDA-Public Use
  Company Number: US-GLAXOSMITHKLINE-A1021672A

PATIENT
  Age: 58 Year
  Sex: Female

DRUGS (3)
  1. LOVAZA [Suspect]
     Indication: MENOPAUSE
     Dosage: 1CAP PER DAY
     Route: 048
     Dates: start: 2010, end: 20130419
  2. ZANTAC OTC [Concomitant]
  3. MULTIVITAMIN [Concomitant]

REACTIONS (4)
  - Abdominal pain upper [Not Recovered/Not Resolved]
  - Abdominal pain upper [Not Recovered/Not Resolved]
  - Hyperchlorhydria [Not Recovered/Not Resolved]
  - Product quality issue [Not Recovered/Not Resolved]
